FAERS Safety Report 7524376-1 (Version None)
Quarter: 2011Q2

REPORT INFORMATION
  Report Type: 
  Country: None (occurrence: None)
  Receive Date: 20110606
  Receipt Date: 20090817
  Transmission Date: 20111010
  Serious: No
  Sender: FDA-Public Use
  Company Number: 2009BI026108

PATIENT
  Age: 51 Year
  Sex: Male

DRUGS (2)
  1. TYSABRI [Suspect]
     Indication: MULTIPLE SCLEROSIS
     Route: 042
     Dates: start: 20080313, end: 20100623
  2. TYSABRI [Suspect]
     Route: 042
     Dates: start: 20110429, end: 20110429

REACTIONS (3)
  - MUSCULAR WEAKNESS [None]
  - MULTIPLE SCLEROSIS [None]
  - DRUG INEFFECTIVE [None]
